FAERS Safety Report 6207320-9 (Version None)
Quarter: 2009Q2

REPORT INFORMATION
  Report Type: 
  Country: None (occurrence: None)
  Receive Date: 20090527
  Receipt Date: 20090527
  Transmission Date: 20091009
  Serious: Yes (Hospitalization)
  Sender: FDA-Public Use
  Company Number: None

PATIENT
  Age: 62 Year
  Sex: Male
  Weight: 71.2 kg

DRUGS (1)
  1. PACLITAXEL [Suspect]
     Indication: LUNG ADENOCARCINOMA
     Dosage: 86 MG QWEEK IV
     Route: 042
     Dates: start: 20090227, end: 20090227

REACTIONS (9)
  - ANGINA PECTORIS [None]
  - BLOOD PRESSURE INCREASED [None]
  - CHEST PAIN [None]
  - COUGH [None]
  - DYSPNOEA [None]
  - FLUSHING [None]
  - HYPERHIDROSIS [None]
  - NO THERAPEUTIC RESPONSE [None]
  - WHEEZING [None]
